FAERS Safety Report 18882558 (Version 2)
Quarter: 2022Q1

REPORT INFORMATION
  Report Type: Spontaneous
  Country: ES (occurrence: ES)
  Receive Date: 20210212
  Receipt Date: 20220202
  Transmission Date: 20220423
  Serious: Yes (Hospitalization)
  Sender: FDA-Public Use
  Company Number: ES-AEMPS-729073

PATIENT
  Age: 75 Year
  Sex: Male

DRUGS (4)
  1. ATORVASTATIN [Suspect]
     Active Substance: ATORVASTATIN
     Indication: Acute myocardial infarction
     Dosage: 80 MILLIGRAM, QD
     Route: 048
     Dates: start: 20200901, end: 20201224
  2. DILTIAZEM HYDROCHLORIDE [Suspect]
     Active Substance: DILTIAZEM HYDROCHLORIDE
     Indication: Acute myocardial infarction
     Dosage: 120 MILLIGRAM, QD
     Route: 048
     Dates: start: 20201001, end: 20201224
  3. OMEPRAZOLE [Concomitant]
     Active Substance: OMEPRAZOLE
     Indication: Prophylaxis
     Dosage: 20 MILLIGRAM, QD
     Route: 048
     Dates: start: 20200901, end: 20201223
  4. TICAGRELOR (8461A) [Concomitant]
     Indication: Prophylaxis
     Dosage: 90 MILLIGRAM, BID
     Route: 048
     Dates: start: 20200901

REACTIONS (1)
  - Hepatitis cholestatic [Recovered/Resolved]

NARRATIVE: CASE EVENT DATE: 20201216
